FAERS Safety Report 4654159-1 (Version None)
Quarter: 2005Q2

REPORT INFORMATION
  Report Type: 
  Country: None (occurrence: None)
  Receive Date: 20050404
  Receipt Date: 20041215
  Transmission Date: 20051028
  Serious: No
  Sender: FDA-Public Use
  Company Number: USA041286196

PATIENT
  Age: 52 Year
  Sex: Male
  Weight: 111 kg

DRUGS (5)
  1. CYMBALTA (DULOEXTINE HYDROCHLORIDE) [Suspect]
     Indication: MAJOR DEPRESSION
     Dosage: 30 MG IN THE MORNING
     Dates: start: 20041119
  2. XANAX (ALPRAZOLAM DUM) [Concomitant]
  3. TEMAZEPAM [Concomitant]
  4. ATENOLOL [Concomitant]
  5. VASOTEC [Concomitant]

REACTIONS (5)
  - DIZZINESS [None]
  - DRUG INEFFECTIVE [None]
  - FATIGUE [None]
  - HEART RATE INCREASED [None]
  - NAUSEA [None]
